FAERS Safety Report 26068794 (Version 1)
Quarter: 2025Q4

REPORT INFORMATION
  Report Type: Report from Study
  Country: US (occurrence: US)
  Receive Date: 20251120
  Receipt Date: 20251120
  Transmission Date: 20260117
  Serious: Yes (Other)
  Sender: ABBVIE
  Company Number: US-ABBVIE-6553373

PATIENT
  Age: 68 Year
  Sex: Female

DRUGS (1)
  1. SKYRIZI [Suspect]
     Active Substance: RISANKIZUMAB-RZAA
     Indication: Crohn^s disease
     Route: 058
     Dates: start: 20250224

REACTIONS (7)
  - Cataract [Unknown]
  - Drug hypersensitivity [Unknown]
  - Eye irritation [Unknown]
  - Upper-airway cough syndrome [Unknown]
  - Stomatitis [Unknown]
  - Mouth injury [Unknown]
  - Flushing [Unknown]

NARRATIVE: CASE EVENT DATE: 20250101
